FAERS Safety Report 4754240-2 (Version None)
Quarter: 2005Q3

REPORT INFORMATION
  Report Type: 
  Country: None (occurrence: None)
  Receive Date: 20050829
  Receipt Date: 20050818
  Transmission Date: 20060218
  Serious: Yes (Hospitalization)
  Sender: FDA-Public Use
  Company Number: DE-JNJFOC-20050804575

PATIENT
  Sex: Female

DRUGS (5)
  1. RISPERDAL QUICKLET [Suspect]
     Route: 048
  2. RISPERDAL QUICKLET [Suspect]
     Route: 048
  3. RISPERDAL CONSTA [Suspect]
     Route: 030
  4. THYRONAJOD [Concomitant]
  5. THYRONAJOD [Concomitant]

REACTIONS (3)
  - HYPERSENSITIVITY [None]
  - SWELLING FACE [None]
  - URTICARIA [None]
